FAERS Safety Report 12133090 (Version 2)
Quarter: 2016Q2

REPORT INFORMATION
  Report Type: Spontaneous
  Country: US (occurrence: US)
  Receive Date: 20160301
  Receipt Date: 20160413
  Transmission Date: 20160815
  Serious: No
  Sender: FDA-Public Use
  Company Number: US-VIIV HEALTHCARE LIMITED-US2016027866

PATIENT
  Sex: Male
  Weight: 79.37 kg

DRUGS (1)
  1. TRIUMEQ [Suspect]
     Active Substance: ABACAVIR SULFATE\DOLUTEGRAVIR SODIUM\LAMIVUDINE
     Indication: HIV INFECTION
     Dosage: UNK UNK, U
     Route: 048
     Dates: start: 20151202, end: 20160223

REACTIONS (4)
  - Pruritus [Unknown]
  - Palpitations [Unknown]
  - Blood pressure inadequately controlled [Unknown]
  - Malaise [Unknown]
